FAERS Safety Report 8355193-0 (Version None)
Quarter: 2012Q2

REPORT INFORMATION
  Report Type: 
  Country: None (occurrence: None)
  Receive Date: 20120511
  Receipt Date: 20120504
  Transmission Date: 20120825
  Serious: Yes (Life-Threatening, Hospitalization, Other)
  Sender: FDA-Public Use
  Company Number: US-MPIJNJ-2012-01864

PATIENT
  Age: 14 Year
  Sex: Female
  Weight: 64.8 kg

DRUGS (8)
  1. CYTARABINE [Suspect]
     Indication: B PRECURSOR TYPE ACUTE LEUKAEMIA
     Dosage: UNK
     Route: 037
     Dates: end: 20120206
  2. HYDROCORTISONE [Suspect]
     Indication: B PRECURSOR TYPE ACUTE LEUKAEMIA
     Dosage: UNK
     Route: 037
     Dates: start: 20120211
  3. VELCADE [Suspect]
     Indication: B PRECURSOR TYPE ACUTE LEUKAEMIA
     Dosage: 1.3 MG/M2, CYCLIC
     Route: 040
     Dates: start: 20120211, end: 20120218
  4. VINCRISTINE [Suspect]
     Indication: B PRECURSOR TYPE ACUTE LEUKAEMIA
     Dosage: 1.5 MG/M2, CYCLIC
     Route: 040
     Dates: start: 20120211, end: 20120302
  5. PREDNISONE TAB [Suspect]
     Indication: B PRECURSOR TYPE ACUTE LEUKAEMIA
     Dosage: 20 MG/M2, CYCLIC
     Route: 048
     Dates: start: 20120211, end: 20120309
  6. PEGASPARGASE [Suspect]
     Indication: B PRECURSOR TYPE ACUTE LEUKAEMIA
     Dosage: 2500 IU, UNK
     Dates: start: 20120211, end: 20120302
  7. DOXORUBICIN HCL [Suspect]
     Indication: B PRECURSOR TYPE ACUTE LEUKAEMIA
     Dosage: 60 MG/M2, CYCLIC
     Route: 042
     Dates: start: 20120211, end: 20120211
  8. METHOTREXATE [Suspect]
     Indication: B PRECURSOR TYPE ACUTE LEUKAEMIA
     Dosage: UNK
     Route: 037
     Dates: start: 20120211

REACTIONS (4)
  - HYPERTRIGLYCERIDAEMIA [None]
  - DEPRESSED LEVEL OF CONSCIOUSNESS [None]
  - CEREBROVASCULAR ACCIDENT [None]
  - ENCEPHALITIC INFECTION [None]
